FAERS Safety Report 13104268 (Version 4)
Quarter: 2017Q1

REPORT INFORMATION
  Report Type: Report from Study
  Country: NL (occurrence: NL)
  Receive Date: 20170111
  Receipt Date: 20170124
  Transmission Date: 20170428
  Serious: Yes (Hospitalization)
  Sender: FDA-Public Use
  Company Number: NL-ROCHE-1874202

PATIENT
  Age: 72 Year
  Sex: Male
  Weight: 59 kg

DRUGS (30)
  1. MACROGOL [Concomitant]
     Active Substance: POLYETHYLENE GLYCOLS
     Indication: CONSTIPATION
     Route: 065
     Dates: start: 20161020
  2. DEXTRAN/HYDROXYPROPYL METHYLCELLULOSE [Concomitant]
     Indication: DRY EYE
     Route: 065
     Dates: start: 20161109
  3. NADROPARIN [Concomitant]
     Active Substance: NADROPARIN
     Route: 065
     Dates: start: 20161229, end: 20170105
  4. METOCLOPRAMIDE. [Concomitant]
     Active Substance: METOCLOPRAMIDE
     Indication: PROPHYLAXIS
     Route: 065
     Dates: start: 20161020
  5. HALOPERIDOL. [Concomitant]
     Active Substance: HALOPERIDOL
     Route: 065
     Dates: start: 20170103, end: 20170104
  6. NISITA (NETHERLANDS) [Concomitant]
     Indication: MUCOSAL DRYNESS
     Route: 065
     Dates: start: 20161109
  7. CLEMASTINE [Concomitant]
     Active Substance: CLEMASTINE
     Indication: PROPHYLAXIS
     Route: 065
     Dates: start: 20161206, end: 20161206
  8. CLEMASTINE [Concomitant]
     Active Substance: CLEMASTINE
     Route: 065
     Dates: start: 20161214, end: 20161214
  9. IPRATROPIUM [Concomitant]
     Active Substance: IPRATROPIUM
     Indication: PROPHYLAXIS
     Route: 065
     Dates: start: 20170103, end: 20170106
  10. SUFENTANIL [Concomitant]
     Active Substance: SUFENTANIL
     Indication: PROPHYLAXIS
     Route: 065
     Dates: start: 20161229, end: 20161231
  11. MAGNESIUM SULFATE. [Concomitant]
     Active Substance: MAGNESIUM SULFATE
     Indication: HYPOMAGNESAEMIA
     Route: 065
     Dates: start: 20161229, end: 20170103
  12. CARBOPLATIN. [Suspect]
     Active Substance: CARBOPLATIN
     Indication: NON-SMALL CELL LUNG CANCER STAGE IV
     Dosage: TARGET AUC = 6 MG/ML/MIN?MOST RECENT DOSE (645 MG) ADMINISTERED ON 28/DEC/2016, PRIOR TO THE EVENT
     Route: 042
     Dates: start: 20161020
  13. RANITIDINE. [Concomitant]
     Active Substance: RANITIDINE
     Indication: DIARRHOEA
     Route: 065
     Dates: start: 20161214, end: 20161214
  14. NOREPINEPHRINE [Concomitant]
     Active Substance: NOREPINEPHRINE\NOREPINEPHRINE BITARTRATE
     Indication: HYPOTENSION
     Route: 065
     Dates: start: 20161229, end: 20161230
  15. SALBUTAMOL [Concomitant]
     Active Substance: ALBUTEROL
     Indication: PROPHYLAXIS
     Route: 065
     Dates: start: 20170103, end: 20170106
  16. PARACETAMOL [Concomitant]
     Active Substance: ACETAMINOPHEN
     Indication: PROPHYLAXIS
     Route: 065
     Dates: start: 20161229, end: 20170103
  17. HYDROCORTISONE. [Concomitant]
     Active Substance: HYDROCORTISONE
     Indication: PROPHYLAXIS
     Route: 065
     Dates: start: 20161206, end: 20161206
  18. POTASSIUM CHLORIDE. [Concomitant]
     Active Substance: POTASSIUM CHLORIDE
     Indication: HYPOKALAEMIA
     Route: 065
     Dates: start: 20161229, end: 20170104
  19. DEXMEDETOMIDINE. [Concomitant]
     Active Substance: DEXMEDETOMIDINE
     Route: 065
     Dates: start: 20161229, end: 20161231
  20. NAB-PACLITAXEL [Suspect]
     Active Substance: PACLITAXEL
     Indication: NON-SMALL CELL LUNG CANCER STAGE IV
     Dosage: MOST RECENT DOSE (171 MG) ADMINISTERED ON 28/DEC/2016, PRIOR TO THE EVENT
     Route: 042
     Dates: start: 20161020
  21. MACROGOL [Concomitant]
     Active Substance: POLYETHYLENE GLYCOLS
     Route: 065
     Dates: start: 20161229
  22. BLOOD CELLS, PACKED HUMAN [Concomitant]
     Active Substance: HUMAN BLOOD CELLS
     Indication: ANAEMIA
     Route: 065
     Dates: start: 20161222, end: 20161222
  23. TEMAZEPAM. [Concomitant]
     Active Substance: TEMAZEPAM
     Route: 065
     Dates: start: 20170101, end: 20170102
  24. SODIUM GLUCONATE. [Concomitant]
     Active Substance: SODIUM GLUCONATE
     Indication: HYPOCALCAEMIA
     Route: 065
     Dates: start: 20170103, end: 20170103
  25. ATEZOLIZUMAB [Suspect]
     Active Substance: ATEZOLIZUMAB
     Indication: NON-SMALL CELL LUNG CANCER STAGE IV
     Dosage: MOST RECENT DOSE ADMINISTERED ON 28/DEC/2016, PRIOR TO THE EVENT
     Route: 042
     Dates: start: 20161020
  26. NAB-PACLITAXEL [Suspect]
     Active Substance: PACLITAXEL
     Indication: NON-SMALL CELL LUNG CANCER STAGE IV
  27. RANITIDINE. [Concomitant]
     Active Substance: RANITIDINE
     Indication: PROPHYLAXIS
     Route: 065
     Dates: start: 20161206, end: 20161206
  28. HYDROCORTISONE. [Concomitant]
     Active Substance: HYDROCORTISONE
     Route: 065
     Dates: start: 20161214, end: 20161214
  29. RANITIDINE. [Concomitant]
     Active Substance: RANITIDINE
     Route: 065
     Dates: start: 20161228, end: 20161228
  30. CLEMASTINE [Concomitant]
     Active Substance: CLEMASTINE
     Route: 065
     Dates: start: 20161228, end: 20161228

REACTIONS (1)
  - Lung infection [Recovered/Resolved]

NARRATIVE: CASE EVENT DATE: 20161229
